FAERS Safety Report 4559420-7 (Version None)
Quarter: 2005Q1

REPORT INFORMATION
  Report Type: 
  Country: None (occurrence: None)
  Receive Date: 20050120
  Receipt Date: 20050120
  Transmission Date: 20050727
  Serious: Yes (Hospitalization)
  Sender: FDA-Public Use
  Company Number: None

PATIENT
  Age: 55 Year
  Sex: Male
  Weight: 100 kg

DRUGS (5)
  1. MORPHINE [Suspect]
     Indication: RHEUMATOID ARTHRITIS
     Dosage: 90MG Q8H
  2. TERAZOSIN [Suspect]
     Indication: PROSTATIC DISORDER
  3. ELAVIL [Concomitant]
  4. METHADONE HCL [Concomitant]
  5. PREDNISONE [Concomitant]

REACTIONS (4)
  - HYPOTENSION [None]
  - MENTAL STATUS CHANGES [None]
  - SYNCOPE [None]
  - VASCULITIS [None]
